FAERS Safety Report 17465889 (Version 1)
Quarter: 2020Q1

REPORT INFORMATION
  Report Type: Spontaneous
  Country: US (occurrence: US)
  Receive Date: 20200227
  Receipt Date: 20200227
  Transmission Date: 20200409
  Serious: Yes (Hospitalization, Other)
  Sender: FDA-Public Use
  Company Number: US-LUPIN PHARMACEUTICALS INC.-2020-00900

PATIENT
  Age: 27 Year
  Sex: Male

DRUGS (4)
  1. TESTOSTERONE. [Suspect]
     Active Substance: TESTOSTERONE
     Indication: MUSCLE BUILDING THERAPY
     Dosage: UNK
     Route: 065
  2. METHASTERONE. [Suspect]
     Active Substance: METHASTERONE
     Indication: MUSCLE BUILDING THERAPY
     Dosage: UNK
     Route: 065
  3. TRENBOLONE [Suspect]
     Active Substance: TRENBOLONE
     Indication: MUSCLE BUILDING THERAPY
     Dosage: UNK
     Route: 065
  4. OXANDROLONE. [Suspect]
     Active Substance: OXANDROLONE
     Indication: MUSCLE BUILDING THERAPY
     Dosage: UNK
     Route: 065

REACTIONS (3)
  - Drug-induced liver injury [Recovered/Resolved]
  - Off label use [Unknown]
  - Hepatitis cholestatic [Recovered/Resolved]
